FAERS Safety Report 9204582 (Version 1)
Quarter: 2013Q1

REPORT INFORMATION
  Report Type: Spontaneous
  Country: US (occurrence: None)
  Receive Date: 20120709
  Receipt Date: 20120709
  Transmission Date: 20140127
  Serious: No
  Sender: FDA-Public Use
  Company Number: 2012HGS-003485

PATIENT
  Age: 52 Year
  Sex: Female
  Weight: 77.57 kg

DRUGS (6)
  1. BENLYSTA [Suspect]
     Indication: SYSTEMIC LUPUS ERYTHEMATOSUS
     Dosage: 1 IN 28 D
     Route: 041
     Dates: start: 20120306
  2. PLAQUENIL (HYDROXYCHLOROQUINE PHOSPHATE) (HYDROXYCHLOROQUINE PHOSPHATE) [Concomitant]
  3. PREDNISONE (PREDNISONE) [Concomitant]
  4. NEXIUM (ESOMEPRAZOLE MAGNESIUM) (ESOMEPRAZOLE MAGNESIUM [Concomitant]
  5. VITAMINS (KAPSOVIT) (ERGOCALCIFEROL, ASCORBIC AICD, THIAMINE HYDROCHLORIDE, RETINOL, RIBOFLAVIN, NICOTINOMIDE) [Concomitant]
  6. MACROBID NITROFURANTOIN) (NITROFURANTOIN) [Concomitant]

REACTIONS (3)
  - Lymphadenopathy [None]
  - Pharyngitis streptococcal [None]
  - Bronchitis [None]
